FAERS Safety Report 5665198-6 (Version None)
Quarter: 2008Q1

REPORT INFORMATION
  Report Type: 
  Country: None (occurrence: None)
  Receive Date: 20080314
  Receipt Date: 20080220
  Transmission Date: 20080703
  Serious: No
  Sender: FDA-Public Use
  Company Number: US-ABBOTT-07P-163-0418085-00

PATIENT
  Sex: Male
  Weight: 93.07 kg

DRUGS (10)
  1. HUMIRA [Suspect]
     Indication: PSORIASIS
     Route: 058
     Dates: start: 20060201, end: 20070201
  2. HUMIRA [Suspect]
     Dates: start: 20070201
  3. UV LIGHT TREATMENTS [Concomitant]
     Indication: PSORIASIS
     Route: 061
  4. METHOTREXATE [Concomitant]
     Indication: PSORIASIS
     Route: 048
  5. FOLIC ACID [Concomitant]
     Indication: PSORIASIS
     Route: 048
  6. LISINOPRIL [Concomitant]
     Indication: HYPERTENSION
     Route: 048
  7. CLOVAX CREAM SPRAY [Concomitant]
     Indication: PSORIASIS
     Route: 061
  8. ASPIRIN [Concomitant]
     Indication: CARDIOVASCULAR EVENT PROPHYLAXIS
     Route: 048
  9. VITAMINS [Concomitant]
     Indication: VITAMIN SUPPLEMENTATION
     Route: 048
  10. ATORVASTATIN CALCIUM [Concomitant]
     Indication: HYPERTENSION
     Route: 048

REACTIONS (2)
  - DRUG INEFFECTIVE [None]
  - PSORIASIS [None]
